FAERS Safety Report 7250348-0 (Version None)
Quarter: 2011Q1

REPORT INFORMATION
  Report Type: 
  Country: None (occurrence: None)
  Receive Date: 20110128
  Receipt Date: 20110121
  Transmission Date: 20110831
  Serious: Yes (Death, Hospitalization)
  Sender: FDA-Public Use
  Company Number: JP-PFIZER INC-2010174060

PATIENT
  Age: 57 Year
  Sex: Male

DRUGS (16)
  1. LANSOPRAZOLE [Concomitant]
     Indication: GASTRIC DISORDER
     Dosage: 15 MG, 1X/DAY
     Route: 048
     Dates: start: 20101130, end: 20101207
  2. MAGMITT [Concomitant]
     Indication: CONSTIPATION
     Dosage: 330 MG, 3X/DAY
     Route: 048
     Dates: start: 20101130, end: 20101213
  3. LOXONIN [Concomitant]
     Indication: CANCER PAIN
     Dosage: 60 MG, 3X/DAY
     Route: 048
     Dates: end: 20101130
  4. ZOMETA [Concomitant]
     Indication: METASTASES TO BONE
     Dosage: 4 MG, 1X/DAY
     Route: 042
     Dates: start: 20101206, end: 20101206
  5. MORPHINE HYDROCHLORIDE [Suspect]
     Indication: ANALGESIC THERAPY
     Dosage: 152 MG/DAY
     Route: 058
     Dates: start: 20101130
  6. OMEPRAL [Concomitant]
     Indication: GASTRIC DISORDER
     Dosage: 20 MG/DAY
     Route: 042
     Dates: start: 20101208
  7. MUCOSTA [Concomitant]
     Indication: GASTRIC DISORDER
     Dosage: UNK
     Route: 048
     Dates: end: 20101130
  8. FLURBIPROFEN [Concomitant]
     Indication: ANALGESIC THERAPY
     Dosage: 150 MG/DAY
     Route: 042
     Dates: start: 20101130
  9. BETAMETHASONE [Concomitant]
     Indication: NEURALGIA
     Dosage: 2 MG/DAY
     Route: 042
     Dates: start: 20101130
  10. PANTOSIN [Concomitant]
     Indication: ILEUS PARALYTIC
     Dosage: 200 MG/DAY
     Route: 041
     Dates: start: 20101207
  11. LYRICA [Suspect]
     Indication: NEURALGIA
     Dosage: 75 MG/DAY
     Route: 048
     Dates: start: 20101215, end: 20101215
  12. BETAMETHASONE [Concomitant]
     Indication: CACHEXIA
  13. OXYCONTIN [Concomitant]
     Indication: CANCER PAIN
     Dosage: 70 MG, 2X/DAY
     Route: 048
     Dates: end: 20101130
  14. SENNOSIDE A [Concomitant]
     Indication: CONSTIPATION
     Dosage: 24 MG, 1X/DAY
     Route: 048
  15. MAGNESIUM SULFATE [Concomitant]
     Indication: CONSTIPATION
     Dosage: UNK
     Route: 048
     Dates: start: 20101214, end: 20101220
  16. MORPHINE HYDROCHLORIDE [Concomitant]
     Indication: CANCER PAIN
     Dosage: 20 MG, AS NEEDED
     Route: 048
     Dates: end: 20101130

REACTIONS (5)
  - NAUSEA [None]
  - RECTAL CANCER [None]
  - DISEASE PROGRESSION [None]
  - DELIRIUM [None]
  - CONVULSION [None]
